FAERS Safety Report 5811484-6 (Version None)
Quarter: 2008Q3

REPORT INFORMATION
  Report Type: 
  Country: None (occurrence: None)
  Receive Date: 20080716
  Receipt Date: 20080711
  Transmission Date: 20090109
  Serious: Yes (Other)
  Sender: FDA-Public Use
  Company Number: US-AVENTIS-200814230US

PATIENT
  Sex: Female
  Weight: 69.4 kg

DRUGS (8)
  1. LANTUS [Suspect]
     Dosage: DOSE: UNK INCREASED TO 18U
     Route: 058
     Dates: start: 20071101, end: 20080601
  2. LANTUS [Suspect]
     Route: 058
     Dates: start: 20080601
  3. NOVOLOG [Suspect]
     Dosage: DOSE: SLIDING SCALE
     Dates: start: 20071101
  4. METFORMIN [Concomitant]
     Route: 048
     Dates: start: 20040501
  5. LEVOTHYROXINE SODIUM [Concomitant]
     Route: 048
     Dates: start: 20030101
  6. DIOVAN HCT [Concomitant]
     Dosage: DOSE: 160/25
     Route: 048
     Dates: start: 20030101
  7. KLOR-CON [Concomitant]
     Dates: start: 20030101
  8. IMITREX [Concomitant]
     Indication: MIGRAINE
     Dosage: DOSE: UNK
     Dates: start: 20070101

REACTIONS (7)
  - BLOOD GLUCOSE DECREASED [None]
  - BLOOD GLUCOSE INCREASED [None]
  - DEPRESSION [None]
  - DYSPEPSIA [None]
  - INCREASED APPETITE [None]
  - TREMOR [None]
  - WEIGHT INCREASED [None]
